FAERS Safety Report 8758478 (Version 4)
Quarter: 2012Q4

REPORT INFORMATION
  Report Type: Report from Study
  Country: SI (occurrence: SI)
  Receive Date: 20120829
  Receipt Date: 20120928
  Transmission Date: 20130627
  Serious: Yes (Death, Hospitalization, Other)
  Sender: FDA-Public Use
  Company Number: SI-JNJFOC-20120715383

PATIENT
  Age: 50 Year
  Sex: Male
  Weight: 170 kg

DRUGS (4)
  1. INFLIXIMAB, RECOMBINANT [Suspect]
     Indication: PSORIASIS
     Route: 042
     Dates: start: 20120717
  2. INFLIXIMAB, RECOMBINANT [Suspect]
     Indication: PSORIASIS
     Route: 042
     Dates: start: 20100526
  3. METHOTREXATE [Concomitant]
  4. CORTICOSTEROID [Concomitant]
     Route: 061

REACTIONS (1)
  - Cardiac failure [Fatal]
